FAERS Safety Report 18696262 (Version 2)
Quarter: 2021Q1

REPORT INFORMATION
  Report Type: Report from Study
  Country: BR (occurrence: BR)
  Receive Date: 20210104
  Receipt Date: 20210311
  Transmission Date: 20210419
  Serious: Yes (Other)
  Sender: FDA-Public Use
  Company Number: BR-UCBSA-2020054658

PATIENT
  Age: 42 Year
  Sex: Female
  Weight: 72 kg

DRUGS (10)
  1. CERTOLIZUMAB PEGOL [Suspect]
     Active Substance: CERTOLIZUMAB PEGOL
     Indication: ANKYLOSING SPONDYLITIS
     Dosage: 200 MILLIGRAM, EV 2 WEEKS(QOW)
     Route: 058
     Dates: start: 202009
  2. VITAMIN D [ERGOCALCIFEROL] [Concomitant]
     Active Substance: ERGOCALCIFEROL
     Indication: VITAMIN SUPPLEMENTATION
     Dosage: 1 DOSAGE FORM, WEEKLY (QW)
     Route: 048
     Dates: start: 20201218
  3. ACETILCISTEINA [Concomitant]
     Active Substance: ACETYLCYSTEINE
     Indication: COVID-19
     Dosage: UNK
     Route: 048
     Dates: start: 20201217
  4. PREDSIN [CHLORAMPHENICOL;PREDNISOLONE BUTYLACETATE] [Concomitant]
     Indication: COVID-19
     Dosage: 40 MILLILITER, ONCE DAILY (QD)
     Route: 048
     Dates: start: 20201218
  5. CLAVULIN [AMOXICILLIN SODIUM;CLAVULANATE POTASSIUM] [Concomitant]
     Active Substance: AMOXICILLIN\CLAVULANATE POTASSIUM
     Indication: COVID-19
     Dosage: UNK
     Route: 048
     Dates: start: 20201214, end: 20201221
  6. TRAMOL [PARACETAMOL] [Concomitant]
     Indication: PAIN
     Route: 042
  7. PREDSIN [Concomitant]
     Active Substance: CHLORAMPHENICOL\PREDNISOLONE
     Indication: COAGULOPATHY
     Dosage: 40 MILLIGRAM, ONCE DAILY (QD)
     Dates: start: 20201218
  8. CLEXANE [Concomitant]
     Active Substance: ENOXAPARIN SODIUM
     Indication: COAGULOPATHY
  9. PERCOF [Concomitant]
     Indication: COVID-19
     Dosage: 10 MILLILITER, 2X/DAY (BID)
     Route: 048
     Dates: start: 20201211, end: 20201218
  10. ZINC. [Concomitant]
     Active Substance: ZINC
     Indication: VITAMIN SUPPLEMENTATION
     Dosage: UNK
     Route: 048
     Dates: start: 20201218

REACTIONS (5)
  - Urinary tract infection [Recovered/Resolved]
  - Hypoaesthesia oral [Recovered/Resolved]
  - Spondylitis [Not Recovered/Not Resolved]
  - Hypoaesthesia [Recovered/Resolved]
  - COVID-19 [Recovering/Resolving]

NARRATIVE: CASE EVENT DATE: 20201209
